FAERS Safety Report 20608953 (Version 1)
Quarter: 2022Q1

REPORT INFORMATION
  Report Type: Spontaneous
  Country: US (occurrence: None)
  Receive Date: 20220317
  Receipt Date: 20220317
  Transmission Date: 20220423
  Serious: No
  Sender: FDA-Public Use
  Company Number: US-ROCHE-2842526

PATIENT
  Sex: Female

DRUGS (6)
  1. XOLAIR [Suspect]
     Active Substance: OMALIZUMAB
     Indication: Product used for unknown indication
     Route: 065
  2. MONTELUKAST [Concomitant]
     Active Substance: MONTELUKAST SODIUM
  3. DOXEPIN [Concomitant]
     Active Substance: DOXEPIN
  4. DESLORATADINE [Concomitant]
     Active Substance: DESLORATADINE
  5. LEVOCETIRIZINE [Concomitant]
     Active Substance: LEVOCETIRIZINE
  6. RANITIDINE [Concomitant]
     Active Substance: RANITIDINE

REACTIONS (2)
  - Skin burning sensation [Unknown]
  - Drug ineffective [Unknown]
